FAERS Safety Report 17117735 (Version 3)
Quarter: 2020Q1

REPORT INFORMATION
  Report Type: Spontaneous
  Country: FR (occurrence: FR)
  Receive Date: 20191205
  Receipt Date: 20200218
  Transmission Date: 20200409
  Serious: Yes (Life-Threatening, Hospitalization, Disabling)
  Sender: FDA-Public Use
  Company Number: FR-MYLANLABS-2019M1119284

PATIENT
  Age: 43 Year
  Sex: Male

DRUGS (11)
  1. LAMOTRIGINE. [Suspect]
     Active Substance: LAMOTRIGINE
     Indication: BIPOLAR DISORDER
     Dosage: 1 DF, QD
     Dates: start: 201705
  2. LEXOMIL [Concomitant]
     Active Substance: BROMAZEPAM
     Indication: PRODUCT USED FOR UNKNOWN INDICATION
     Dosage: 3 DOSAGE FORM, QD
     Route: 065
  3. TIAPRIDAL [Concomitant]
     Active Substance: TIAPRIDE HYDROCHLORIDE
     Indication: PRODUCT USED FOR UNKNOWN INDICATION
     Dosage: 0.5 DF THREE TIMES DAILY AS NEEDED
     Route: 065
  4. DOLIPRANE [Concomitant]
     Active Substance: ACETAMINOPHEN
     Indication: PRODUCT USED FOR UNKNOWN INDICATION
     Dosage: UNK
  5. IBUPROFEN. [Suspect]
     Active Substance: IBUPROFEN
     Indication: RHINITIS
     Dosage: UNK
  6. AUGMENTIN [Suspect]
     Active Substance: AMOXICILLIN\CLAVULANATE POTASSIUM
     Indication: RHINITIS
     Dosage: 2 DF, BID
     Route: 065
     Dates: start: 201706
  7. RIVOTRIL [Concomitant]
     Active Substance: CLONAZEPAM
     Indication: PRODUCT USED FOR UNKNOWN INDICATION
     Dosage: 10 GTT DROPS, QD
     Route: 065
  8. PIVALONE                           /00803802/ [Concomitant]
     Active Substance: TIXOCORTOL PIVALATE
     Indication: RHINITIS
     Dosage: 1 TO 2 SPRAYS FOUR TIMES DAILY
     Route: 065
     Dates: start: 201706
  9. LAMOTRIGINE. [Suspect]
     Active Substance: LAMOTRIGINE
     Dosage: 2 DOSAGE FORM, QW
     Dates: start: 201706
  10. AUGMENTIN [Suspect]
     Active Substance: AMOXICILLIN\CLAVULANATE POTASSIUM
     Dosage: 2 DF, TID
     Dates: start: 20170607
  11. LAMOTRIGINE. [Suspect]
     Active Substance: LAMOTRIGINE
     Dosage: 3 DF IN THE MORNING
     Dates: start: 201706

REACTIONS (3)
  - Quadriplegia [Not Recovered/Not Resolved]
  - Toxic epidermal necrolysis [Recovered/Resolved with Sequelae]
  - Off label use [Unknown]

NARRATIVE: CASE EVENT DATE: 201705
